FAERS Safety Report 18242943 (Version 1)
Quarter: 2020Q3

REPORT INFORMATION
  Report Type: Spontaneous
  Country: FR (occurrence: FR)
  Receive Date: 20200908
  Receipt Date: 20200908
  Transmission Date: 20201103
  Serious: Yes (Death, Hospitalization)
  Sender: FDA-Public Use
  Company Number: FR-TEVA-2020-FR-1823668

PATIENT
  Age: 65 Year
  Sex: Male
  Weight: 93.5 kg

DRUGS (8)
  1. GEMZAR [Suspect]
     Active Substance: GEMCITABINE HYDROCHLORIDE
     Indication: RENAL NEOPLASM
     Route: 042
     Dates: start: 20180220, end: 20180220
  2. SIMVASTATINE [Concomitant]
     Active Substance: SIMVASTATIN
  3. METFORMINE [Concomitant]
     Active Substance: METFORMIN HYDROCHLORIDE
  4. LERCAN [Concomitant]
     Active Substance: LERCANIDIPINE
  5. CISPLATINE [Suspect]
     Active Substance: CISPLATIN
     Indication: RENAL NEOPLASM
     Route: 042
     Dates: start: 20180220, end: 20180220
  6. PLAVIX [Concomitant]
     Active Substance: CLOPIDOGREL BISULFATE
  7. KARDEGIC [Concomitant]
     Active Substance: ASPIRIN DL-LYSINE
  8. RAMIPRIL. [Concomitant]
     Active Substance: RAMIPRIL

REACTIONS (2)
  - Acute kidney injury [Recovered/Resolved with Sequelae]
  - Renal tubular necrosis [Recovered/Resolved with Sequelae]

NARRATIVE: CASE EVENT DATE: 20180227
